FAERS Safety Report 5405259-X (Version None)
Quarter: 2007Q3

REPORT INFORMATION
  Report Type: 
  Country: None (occurrence: None)
  Receive Date: 20070803
  Receipt Date: 20070727
  Transmission Date: 20080115
  Serious: Yes (Other)
  Sender: FDA-Public Use
  Company Number: A0645242A

PATIENT
  Age: 83 Year
  Sex: Female
  Weight: 62.7 kg

DRUGS (8)
  1. REQUIP [Suspect]
     Indication: NEUROPATHY PERIPHERAL
     Dosage: 1MG PER DAY
     Route: 048
     Dates: start: 20070101, end: 20070323
  2. METOPROLOL SUCCINATE [Concomitant]
  3. SPIRONOLACTONE [Concomitant]
  4. PLAVIX [Concomitant]
  5. NEXIUM [Concomitant]
  6. NITROGLYCERIN [Concomitant]
  7. KEFLEX [Concomitant]
  8. ANTIHYPERTENSIVE [Concomitant]

REACTIONS (8)
  - CHEST PAIN [None]
  - COLD SWEAT [None]
  - MYOCARDIAL INFARCTION [None]
  - NAUSEA [None]
  - PAIN IN EXTREMITY [None]
  - PARAESTHESIA [None]
  - VISION BLURRED [None]
  - VOMITING [None]
